FAERS Safety Report 23138706 (Version 2)
Quarter: 2024Q1

REPORT INFORMATION
  Report Type: Spontaneous
  Country: US (occurrence: US)
  Receive Date: 20231102
  Receipt Date: 20240219
  Transmission Date: 20240409
  Serious: Yes (Other)
  Sender: FDA-Public Use
  Company Number: US-BEH-2023164905

PATIENT
  Sex: Female

DRUGS (19)
  1. HIZENTRA [Suspect]
     Active Substance: HUMAN IMMUNOGLOBULIN G
     Indication: Immunisation
     Dosage: 6 GRAM, QW
     Route: 058
     Dates: start: 20231017
  2. HIZENTRA [Suspect]
     Active Substance: HUMAN IMMUNOGLOBULIN G
     Dosage: 6 GRAM, QW
     Route: 058
     Dates: start: 202310
  3. ASPIRIN [Concomitant]
     Active Substance: ASPIRIN
  4. AZELASTINE [Concomitant]
     Active Substance: AZELASTINE\AZELASTINE HYDROCHLORIDE
  5. BUDESONIDE [Concomitant]
     Active Substance: BUDESONIDE
  6. CALCIUM [Concomitant]
     Active Substance: CALCIUM
  7. DICLOFENAC [Concomitant]
     Active Substance: DICLOFENAC
  8. EZETIMIBE [Concomitant]
     Active Substance: EZETIMIBE
  9. FAMOTIDINE [Concomitant]
     Active Substance: FAMOTIDINE
  10. IPRATROPIUM [Concomitant]
     Active Substance: IPRATROPIUM
  11. KETOTIFEN [Concomitant]
     Active Substance: KETOTIFEN
  12. METOPROLOL [Concomitant]
     Active Substance: METOPROLOL
  13. MONTELUKAST [Concomitant]
     Active Substance: MONTELUKAST SODIUM
  14. MUPIROCIN [Concomitant]
     Active Substance: MUPIROCIN
  15. NAPROXEN [Concomitant]
     Active Substance: NAPROXEN
  16. PREDNISONE [Concomitant]
     Active Substance: PREDNISONE
  17. ROFLUMILAST [Concomitant]
     Active Substance: ROFLUMILAST
  18. VITAMIN B12 [Concomitant]
     Active Substance: CYANOCOBALAMIN
  19. MINERALS\VITAMINS [Concomitant]
     Active Substance: MINERALS\VITAMINS

REACTIONS (10)
  - Dyspnoea [Unknown]
  - Sensitivity to weather change [Unknown]
  - No adverse event [Unknown]
  - Off label use [Unknown]
  - Lipoma [Unknown]
  - Scar [Unknown]
  - Skin cancer [Recovered/Resolved]
  - Blood pressure decreased [Recovered/Resolved]
  - Dizziness [Recovered/Resolved]
  - Sinusitis [Not Recovered/Not Resolved]
